FAERS Safety Report 7288026-4 (Version None)
Quarter: 2011Q1

REPORT INFORMATION
  Report Type: 
  Country: None (occurrence: None)
  Receive Date: 20110211
  Receipt Date: 20110131
  Transmission Date: 20110831
  Serious: Yes (Other)
  Sender: FDA-Public Use
  Company Number: JP-SANOFI-AVENTIS-2010SA070430

PATIENT
  Sex: Male

DRUGS (3)
  1. HUMALOG [Concomitant]
     Dosage: DOSE:18 UNIT(S)
     Route: 058
  2. SOLOSTAR [Suspect]
     Route: 058
  3. LANTUS [Suspect]
     Route: 058

REACTIONS (2)
  - DEVICE MALFUNCTION [None]
  - PRODUCT QUALITY ISSUE [None]
